FAERS Safety Report 10374824 (Version 1)
Quarter: 2014Q1

REPORT INFORMATION
  Report Type: Spontaneous
  Country: US (occurrence: None)
  Receive Date: 20140306
  Receipt Date: 20140306
  Transmission Date: 20141002
  Serious: Yes (Other)
  Sender: FDA-Public Use
  Company Number: 163-21880-13063345

PATIENT
  Age: 64 Year
  Sex: Female
  Weight: 61.24 kg

DRUGS (11)
  1. REVLIMID (LENALIDOMIDE) (25 MILLIGRAM, CAPSULES) [Suspect]
     Indication: PLASMA CELL MYELOMA
     Route: 048
     Dates: start: 20111114
  2. DEXAMETHASONE [Concomitant]
  3. TRILEPTAL (OXCARBAZEPINE) (TABLETS) [Concomitant]
  4. ZOMETA (ZOLEDRONIC ACID) [Concomitant]
  5. ONDANSETRON HCL [Concomitant]
  6. ATENOLOL (TABLETS) [Concomitant]
  7. SIMVASTATIN [Concomitant]
  8. ACYCLOVIR (ACICLOVIR) [Concomitant]
  9. HYDROCODONE W/ACETAMINOPHEN (VICODIN) [Concomitant]
  10. NEXIUM (ESOMEPRAZOLE) (CAPSULES) [Concomitant]
  11. POTASSIUM (TABLETS) [Concomitant]

REACTIONS (2)
  - Full blood count decreased [None]
  - Drug ineffective [None]
